FAERS Safety Report 25435755 (Version 1)
Quarter: 2025Q2

REPORT INFORMATION
  Report Type: Spontaneous
  Country: BR (occurrence: BR)
  Receive Date: 20250613
  Receipt Date: 20250613
  Transmission Date: 20250716
  Serious: Yes (Hospitalization, Other)
  Sender: MERZ
  Company Number: BR-MERZ THERAPEUTICS GMBH-ACO_178083_2025

PATIENT

DRUGS (1)
  1. DALFAMPRIDINE [Suspect]
     Active Substance: DALFAMPRIDINE
     Indication: Gait disturbance
     Dosage: 2 DOSAGE FORM (2 TABLETS), QD
     Route: 065
     Dates: start: 2015

REACTIONS (18)
  - Bacterial sepsis [Recovered/Resolved]
  - Bacterial sepsis [Recovered/Resolved]
  - Bacterial sepsis [Recovered/Resolved]
  - Bacterial sepsis [Recovered/Resolved]
  - Internal fixation of fracture [Not Recovered/Not Resolved]
  - Patient-device incompatibility [Recovered/Resolved]
  - Crying [Unknown]
  - Wheelchair user [Not Recovered/Not Resolved]
  - Multiple allergies [Unknown]
  - Pyrexia [Unknown]
  - Chills [Unknown]
  - Myalgia [Unknown]
  - Syncope [Recovered/Resolved]
  - Musculoskeletal stiffness [Recovered/Resolved]
  - Lower limb fracture [Unknown]
  - Expired product administered [Unknown]
  - Balance disorder [Recovered/Resolved]
  - Asthenia [Recovered/Resolved]

NARRATIVE: CASE EVENT DATE: 20180101
